FAERS Safety Report 5641700-5 (Version None)
Quarter: 2008Q1

REPORT INFORMATION
  Report Type: 
  Country: None (occurrence: None)
  Receive Date: 20080131
  Receipt Date: 20071011
  Transmission Date: 20080703
  Serious: No
  Sender: FDA-Public Use
  Company Number: PHEH2007US13523

PATIENT
  Sex: Female

DRUGS (2)
  1. TEKTURNA [Suspect]
     Indication: HYPERTENSION
     Dosage: 150 MG
  2. ATENOLOL (ANETHOLE TRITHIONE) [Concomitant]

REACTIONS (3)
  - DIARRHOEA [None]
  - GASTROINTESTINAL PAIN [None]
  - MYALGIA [None]
